FAERS Safety Report 10034322 (Version 1)
Quarter: 2014Q1

REPORT INFORMATION
  Report Type: Spontaneous
  Country: US (occurrence: None)
  Receive Date: 20140324
  Receipt Date: 20140324
  Transmission Date: 20141002
  Serious: Yes (Other)
  Sender: FDA-Public Use
  Company Number: None

PATIENT
  Age: 79 Year
  Sex: Female
  Weight: 62.6 kg

DRUGS (19)
  1. NITROFURANTOIN (MONOHYDRATE/MACROCRYSTALS) [Suspect]
     Indication: URINARY TRACT INFECTION
     Dosage: FOR YEARS.
     Route: 048
  2. NITROFURANTOIN (MONOHYDRATE/MACROCRYSTALS) [Suspect]
     Dosage: FOR YEARS.
     Route: 048
  3. ALPRAZOLAM [Concomitant]
  4. ASPIRIN [Concomitant]
  5. CALCIUM WITH D [Concomitant]
  6. CARISOPRODOL [Concomitant]
  7. FIORICET WITH CODEINE [Concomitant]
  8. HYDROCODONE-ACETAMINOPHEN [Concomitant]
  9. HYDROXYZINE [Concomitant]
  10. SYNTHROID [Concomitant]
  11. MELATONIN [Concomitant]
  12. METOPROLOL TARTRATE [Concomitant]
  13. PYRIDIUM [Concomitant]
  14. RANITIDINE [Concomitant]
  15. SERTRALINE [Concomitant]
  16. SOLIFENACIN [Concomitant]
  17. SPIRONOLACTONE [Concomitant]
  18. TOPIRAMATE [Concomitant]
  19. VERAPAMIL [Concomitant]

REACTIONS (2)
  - Interstitial lung disease [None]
  - Pulmonary mass [None]
